FAERS Safety Report 7252490-7 (Version None)
Quarter: 2011Q1

REPORT INFORMATION
  Report Type: 
  Country: None (occurrence: None)
  Receive Date: 20110129
  Receipt Date: 20110128
  Transmission Date: 20110831
  Serious: Yes (Other)
  Sender: FDA-Public Use
  Company Number: JP-AMGEN-JPNSP2011002722

PATIENT
  Age: 62 Year
  Sex: Female

DRUGS (4)
  1. METHOTREXATE [Concomitant]
     Indication: RHEUMATOID ARTHRITIS
     Dosage: 6 MG, WEEKLY
     Dates: end: 20081021
  2. BUCILLAMINE [Concomitant]
     Dosage: UNK
     Dates: start: 20071221, end: 20080525
  3. ETANERCEPT [Suspect]
     Indication: RHEUMATOID ARTHRITIS
     Dosage: 25 MG, 2X/WEEK
     Dates: start: 20080220, end: 20081021
  4. ETANERCEPT [Suspect]
     Dosage: 25 MG, UNK
     Dates: start: 20081121

REACTIONS (1)
  - ORGANISING PNEUMONIA [None]
